FAERS Safety Report 8804890 (Version 1)
Quarter: 2012Q4

REPORT INFORMATION
  Report Type: 
  Country: GB (occurrence: GB)
  Receive Date: 20120924
  Receipt Date: 20120924
  Transmission Date: 20130627
  Serious: Yes (Life-Threatening)
  Sender: FDA-Public Use
  Company Number: GB-TEVA-358442ISR

PATIENT
  Sex: Male
  Weight: 219 kg

DRUGS (2)
  1. VALPROIC ACID [Suspect]
     Indication: BIPOLAR DISORDER
     Route: 048
     Dates: start: 20120319
  2. ZUCLOPENTHIXOL [Suspect]
     Indication: BIPOLAR DISORDER
     Route: 030
     Dates: start: 20120521, end: 20120724

REACTIONS (1)
  - Pulmonary embolism [Recovering/Resolving]
